FAERS Safety Report 6360016-5 (Version None)
Quarter: 2009Q3

REPORT INFORMATION
  Report Type: 
  Country: None (occurrence: None)
  Receive Date: 20090917
  Receipt Date: 20090908
  Transmission Date: 20100115
  Serious: Yes (Hospitalization)
  Sender: FDA-Public Use
  Company Number: PHHY2009JP28448

PATIENT
  Sex: Female

DRUGS (7)
  1. ZOMETA [Suspect]
     Indication: SPINAL DISORDER
     Dosage: 4 MG WITH 100 ML SALINE (QMD)
     Route: 042
     Dates: start: 20080417, end: 20090212
  2. TAKEPRON [Concomitant]
     Indication: PROPHYLAXIS AGAINST GASTROINTESTINAL ULCER
     Dosage: 15 MG UNK
     Route: 048
     Dates: start: 20070725
  3. LOXONIN [Concomitant]
     Indication: BACK PAIN
     Dosage: 60 MG UNK
     Route: 048
     Dates: start: 20070823
  4. MUCOSTA [Concomitant]
     Indication: PROPHYLAXIS AGAINST GASTROINTESTINAL ULCER
     Dosage: 100 MG UNK
     Route: 048
     Dates: start: 20070906
  5. ALKERAN [Concomitant]
     Indication: MULTIPLE MYELOMA
     Dosage: 8 MG UNK
     Route: 048
     Dates: start: 20070725, end: 20090201
  6. PREDONINE [Concomitant]
     Indication: MULTIPLE MYELOMA
     Dosage: 50 MG UNK
     Route: 048
     Dates: start: 20070725, end: 20090201
  7. ADALAT CC [Concomitant]
     Indication: HYPERTENSION
     Dosage: 20 MG UNK
     Dates: start: 20021218

REACTIONS (5)
  - C-REACTIVE PROTEIN INCREASED [None]
  - OEDEMA MUCOSAL [None]
  - OSTEONECROSIS [None]
  - PAIN [None]
  - PURULENT DISCHARGE [None]
